FAERS Safety Report 8297877-9 (Version None)
Quarter: 2012Q2

REPORT INFORMATION
  Report Type: 
  Country: None (occurrence: None)
  Receive Date: 20120419
  Receipt Date: 20120413
  Transmission Date: 20120825
  Serious: Yes (Hospitalization)
  Sender: FDA-Public Use
  Company Number: PHHY2012AR001436

PATIENT
  Sex: Male

DRUGS (2)
  1. GILENYA [Suspect]
     Route: 048
     Dates: start: 20111115
  2. GILENYA [Suspect]
     Route: 048

REACTIONS (4)
  - HYPOTENSION [None]
  - BRADYCARDIA [None]
  - CONJUNCTIVITIS [None]
  - UVEITIS [None]
